FAERS Safety Report 13426126 (Version 1)
Quarter: 2017Q2

REPORT INFORMATION
  Report Type: Spontaneous
  Country: NO (occurrence: NO)
  Receive Date: 20170411
  Receipt Date: 20170411
  Transmission Date: 20170830
  Serious: Yes (Death, Other)
  Sender: FDA-Public Use
  Company Number: NO-009507513-1704NOR002167

PATIENT

DRUGS (1)
  1. PEMBROLIZUMAB. [Suspect]
     Active Substance: PEMBROLIZUMAB
     Dosage: UNK
     Dates: start: 20161118

REACTIONS (16)
  - Pneumonia [Unknown]
  - Malignant neoplasm progression [Unknown]
  - General physical health deterioration [Unknown]
  - Rash [Unknown]
  - Prostate cancer [Unknown]
  - Blood glucose increased [Unknown]
  - Pneumonitis [Unknown]
  - Gamma-glutamyltransferase increased [Unknown]
  - Hypothyroidism [Unknown]
  - Death [Fatal]
  - Blood corticotrophin increased [Unknown]
  - Metastases to central nervous system [Unknown]
  - Skin disorder [Unknown]
  - Dyspnoea [Unknown]
  - Aspartate aminotransferase increased [Unknown]
  - Blood alkaline phosphatase increased [Unknown]
